FAERS Safety Report 7152923-0 (Version None)
Quarter: 2010Q4

REPORT INFORMATION
  Report Type: 
  Country: None (occurrence: None)
  Receive Date: 20101209
  Receipt Date: 20101209
  Transmission Date: 20110411
  Serious: Yes (Life-Threatening, Hospitalization)
  Sender: FDA-Public Use
  Company Number: None

PATIENT
  Age: 58 Year
  Sex: Male
  Weight: 90.7194 kg

DRUGS (2)
  1. ULORIC [Suspect]
     Indication: GOUT
     Dates: start: 20100722, end: 20101130
  2. ULORIC [Suspect]
     Indication: RENAL INJURY
     Dates: start: 20100722, end: 20101130

REACTIONS (1)
  - CEREBROVASCULAR ACCIDENT [None]
